FAERS Safety Report 5422120-5 (Version None)
Quarter: 2007Q3

REPORT INFORMATION
  Report Type: 
  Country: None (occurrence: None)
  Receive Date: 20070821
  Receipt Date: 20070821
  Transmission Date: 20080115
  Serious: Yes (Hospitalization)
  Sender: FDA-Public Use
  Company Number: None

PATIENT
  Age: 59 Year
  Sex: Male
  Weight: 83.9154 kg

DRUGS (2)
  1. LIBRIUM [Suspect]
     Indication: ALCOHOL WITHDRAWAL SYNDROME
     Dosage: 25MG Q4H PRN PO
     Route: 048
  2. OMEPRAZOLE [Suspect]
     Indication: GASTRITIS
     Dosage: 20MG QD PO
     Route: 048

REACTIONS (4)
  - ALCOHOLISM [None]
  - DRUG HYPERSENSITIVITY [None]
  - ERYTHEMA MULTIFORME [None]
  - SUICIDAL IDEATION [None]
